FAERS Safety Report 22521291 (Version 1)
Quarter: 2023Q2

REPORT INFORMATION
  Report Type: Spontaneous
  Country: US (occurrence: None)
  Receive Date: 20230605
  Receipt Date: 20230605
  Transmission Date: 20230721
  Serious: Yes (Disabling)
  Sender: FDA-Public Use
  Company Number: None

PATIENT
  Age: 19 Year
  Sex: Male
  Weight: 75.6 kg

DRUGS (1)
  1. FINASTERIDE [Suspect]
     Active Substance: FINASTERIDE
     Indication: Androgenetic alopecia
     Route: 048

REACTIONS (24)
  - Loss of libido [None]
  - Penile size reduced [None]
  - Amnesia [None]
  - Amnesia [None]
  - Anhedonia [None]
  - Executive dysfunction [None]
  - Bradyphrenia [None]
  - Disturbance in attention [None]
  - Cognitive disorder [None]
  - Visuospatial deficit [None]
  - Visual snow syndrome [None]
  - Pallor [None]
  - Skin texture abnormal [None]
  - Kinaesthetic sense disorder [None]
  - Altered visual depth perception [None]
  - Auditory disorder [None]
  - Paraesthesia [None]
  - Bone pain [None]
  - Arthralgia [None]
  - Neurological symptom [None]
  - Muscle atrophy [None]
  - Tinnitus [None]
  - Anorgasmia [None]
  - Product complaint [None]

NARRATIVE: CASE EVENT DATE: 20200930
